FAERS Safety Report 14147933 (Version 1)
Quarter: 2017Q4

REPORT INFORMATION
  Report Type: Spontaneous
  Country: US (occurrence: US)
  Receive Date: 20171031
  Receipt Date: 20171031
  Transmission Date: 20180321
  Serious: No
  Sender: FDA-Public Use
  Company Number: US-009507513-1710USA008315

PATIENT
  Age: 35 Year
  Sex: Female
  Weight: 51.7 kg

DRUGS (1)
  1. NUVARING [Suspect]
     Active Substance: ETHINYL ESTRADIOL\ETONOGESTREL
     Indication: CONTRACEPTION
     Dosage: 1 DF, UNK
     Route: 067

REACTIONS (4)
  - Anxiety [Unknown]
  - Incorrect drug administration duration [Unknown]
  - Muscle strain [Unknown]
  - Dizziness [Unknown]
